FAERS Safety Report 21870832 (Version 5)
Quarter: 2023Q1

REPORT INFORMATION
  Report Type: Report from Study
  Country: DE (occurrence: None)
  Receive Date: 20230117
  Receipt Date: 20230216
  Transmission Date: 20230417
  Serious: Yes (Life-Threatening, Hospitalization)
  Sender: FDA-Public Use
  Company Number: DE-ROCHE-3263615

PATIENT
  Age: 73 Year
  Sex: Male
  Weight: 89 kg

DRUGS (3)
  1. ATEZOLIZUMAB [Suspect]
     Active Substance: ATEZOLIZUMAB
     Indication: Hepatocellular carcinoma
     Dosage: ON 22/DEC/2022, HE RECEIVED LAST DOSE (1200 MG) OF ATEZOLIZUMAB PRIOR TO ADVERSE EVENT ONSET.
     Route: 065
     Dates: start: 20211025
  2. BEVACIZUMAB [Suspect]
     Active Substance: BEVACIZUMAB
     Indication: Hepatocellular carcinoma
     Dosage: ON 29/SEP/2022, HE RECEIVED MOST RECENT DOSE (15 MG/KG) OF BEVACIZUMAB PRIOR TO ADVERSE EVENT ONSET.
     Route: 065
     Dates: start: 20211025
  3. EDOXABAN TOSYLATE [Concomitant]
     Active Substance: EDOXABAN TOSYLATE
     Route: 048
     Dates: start: 20221018, end: 20230110

REACTIONS (3)
  - Anaemia [Recovered/Resolved]
  - Anaemia [Recovered/Resolved]
  - Anaemia [Not Recovered/Not Resolved]

NARRATIVE: CASE EVENT DATE: 20230110
